FAERS Safety Report 7550886-7 (Version None)
Quarter: 2011Q2

REPORT INFORMATION
  Report Type: 
  Country: None (occurrence: None)
  Receive Date: 20110609
  Receipt Date: 20110525
  Transmission Date: 20111010
  Serious: Yes (Other)
  Sender: FDA-Public Use
  Company Number: US-2011-10338

PATIENT
  Age: 62 Year
  Sex: Male

DRUGS (7)
  1. CYDOPHOSPHAMIDE (CYDOPHOSPHAMIDE) [Concomitant]
  2. ROXICODONE [Concomitant]
  3. ETOPOSIDE [Concomitant]
  4. ACYCLOVIR [Concomitant]
  5. BUSULFAN [Suspect]
     Indication: LYMPHOMA
     Dosage: 50 MG MILLIGRAM(S), INTRAVENOUS, 249 MG MILLIGRAM(S), DAILY DOSE, INTRAVENOUS
     Route: 042
     Dates: start: 20110321, end: 20110321
  6. BUSULFAN [Suspect]
     Indication: LYMPHOMA
     Dosage: 50 MG MILLIGRAM(S), INTRAVENOUS, 249 MG MILLIGRAM(S), DAILY DOSE, INTRAVENOUS
     Route: 042
     Dates: start: 20110324, end: 20110327
  7. TAMSULOSIN HCL [Concomitant]

REACTIONS (6)
  - DELAYED ENGRAFTMENT [None]
  - HAEMATOCRIT DECREASED [None]
  - PLATELET COUNT DECREASED [None]
  - WHITE BLOOD CELL COUNT DECREASED [None]
  - RED BLOOD CELL COUNT DECREASED [None]
  - HAEMOGLOBIN DECREASED [None]
